FAERS Safety Report 21348486 (Version 3)
Quarter: 2022Q4

REPORT INFORMATION
  Report Type: Spontaneous
  Country: ES (occurrence: ES)
  Receive Date: 20220919
  Receipt Date: 20221118
  Transmission Date: 20230112
  Serious: Yes (Other)
  Sender: FDA-Public Use
  Company Number: ES-NOVARTISPH-NVSC2022ES210219

PATIENT
  Age: 65 Year
  Sex: Female

DRUGS (6)
  1. DABRAFENIB [Suspect]
     Active Substance: DABRAFENIB
     Indication: Malignant melanoma
     Dosage: UNK (FULL DOSE)
     Route: 065
     Dates: start: 20220725
  2. DABRAFENIB [Suspect]
     Active Substance: DABRAFENIB
     Dosage: 50 %
     Route: 065
     Dates: start: 20220911
  3. DABRAFENIB [Suspect]
     Active Substance: DABRAFENIB
     Dosage: UNK
     Route: 065
  4. TRAMETINIB [Suspect]
     Active Substance: TRAMETINIB
     Indication: Malignant melanoma
     Dosage: UNK (FULL DOSE)
     Route: 065
     Dates: start: 20220725
  5. TRAMETINIB [Suspect]
     Active Substance: TRAMETINIB
     Dosage: 50 %
     Route: 065
     Dates: start: 20220911
  6. TRAMETINIB [Suspect]
     Active Substance: TRAMETINIB
     Dosage: UNK
     Route: 065

REACTIONS (10)
  - Depressed level of consciousness [Unknown]
  - Nervous system disorder [Unknown]
  - Somnolence [Unknown]
  - Disorientation [Unknown]
  - Neurological symptom [Recovered/Resolved]
  - Sleep disorder [Recovered/Resolved]
  - Incontinence [Recovered/Resolved]
  - Urinary incontinence [Unknown]
  - Asthenia [Recovered/Resolved]
  - Rash pruritic [Unknown]
